FAERS Safety Report 4604774-6 (Version None)
Quarter: 2005Q2

REPORT INFORMATION
  Report Type: 
  Country: None (occurrence: None)
  Receive Date: 20050217
  Receipt Date: 20041221
  Transmission Date: 20051028
  Serious: No
  Sender: FDA-Public Use
  Company Number: S04-USA-07920-01

PATIENT
  Age: 89 Year
  Sex: Female

DRUGS (9)
  1. NAMENDA [Suspect]
     Indication: DEMENTIA ALZHEIMER'S TYPE
     Dosage: 5 MG QD PO
     Route: 048
     Dates: start: 20041209, end: 20041215
  2. NAMENDA [Suspect]
     Indication: DEMENTIA ALZHEIMER'S TYPE
     Dosage: 5 MG BID PO
     Route: 048
     Dates: start: 20041216, end: 20041220
  3. ARICEPT [Concomitant]
  4. RISPERDAL [Concomitant]
  5. SYNTHROID [Concomitant]
  6. LEXAPRO [Concomitant]
  7. LIPITOR [Concomitant]
  8. VIOXX [Concomitant]
  9. DICLOFENAC SODIUM [Concomitant]

REACTIONS (1)
  - HYPERSOMNIA [None]
